FAERS Safety Report 5638958-5 (Version None)
Quarter: 2008Q1

REPORT INFORMATION
  Report Type: 
  Country: None (occurrence: None)
  Receive Date: 20080225
  Receipt Date: 20080225
  Transmission Date: 20080703
  Serious: Yes (Hospitalization)
  Sender: FDA-Public Use
  Company Number: None

PATIENT
  Sex: Female
  Weight: 68.9467 kg

DRUGS (4)
  1. ABRAXANE [Suspect]
     Indication: MALIGNANT MELANOMA
     Dosage: 150MG/M^2 QWEEKLY, REST 1 WK INTRAVENOUS DRIP
     Route: 041
     Dates: start: 20071203, end: 20080214
  2. BEVACIZUMAB [Suspect]
     Dosage: 100MG/KG QWEEKLY, REST 1 WK INTRAVENOUS DRIP
     Route: 041
     Dates: start: 20071203, end: 20080214
  3. CHERTUSSIN AC [Concomitant]
  4. NYSTATIN [Concomitant]

REACTIONS (5)
  - CHEST DISCOMFORT [None]
  - COUGH [None]
  - DYSPNOEA [None]
  - PULMONARY EMBOLISM [None]
  - WHITE BLOOD CELL COUNT DECREASED [None]
